FAERS Safety Report 12631153 (Version 2)
Quarter: 2016Q3

REPORT INFORMATION
  Report Type: Spontaneous
  Country: US (occurrence: US)
  Receive Date: 20160808
  Receipt Date: 20160808
  Transmission Date: 20161109
  Serious: No
  Sender: FDA-Public Use
  Company Number: US-BEH-2015052512

PATIENT
  Sex: Male
  Weight: 108 kg

DRUGS (13)
  1. DIPHENHYDRAMINE. [Concomitant]
     Active Substance: DIPHENHYDRAMINE
  2. CELEXA [Concomitant]
     Active Substance: CITALOPRAM HYDROBROMIDE
  3. SEROQUEL [Concomitant]
     Active Substance: QUETIAPINE FUMARATE
  4. NASONEX [Concomitant]
     Active Substance: MOMETASONE FUROATE
  5. ACETAMINOPHEN. [Concomitant]
     Active Substance: ACETAMINOPHEN
  6. HIZENTRA [Suspect]
     Active Substance: HUMAN IMMUNOGLOBULIN G
     Indication: IMMUNODEFICIENCY COMMON VARIABLE
     Route: 058
  7. ABILIFY [Concomitant]
     Active Substance: ARIPIPRAZOLE
  8. LAMICTAL [Concomitant]
     Active Substance: LAMOTRIGINE
  9. EPIPEN [Concomitant]
     Active Substance: EPINEPHRINE
  10. KLONOPIN [Concomitant]
     Active Substance: CLONAZEPAM
  11. DICLOFENAC [Concomitant]
     Active Substance: DICLOFENAC
  12. WELLBUTRIN [Concomitant]
     Active Substance: BUPROPION HYDROCHLORIDE
  13. HIZENTRA [Suspect]
     Active Substance: HUMAN IMMUNOGLOBULIN G
     Route: 058

REACTIONS (2)
  - Influenza like illness [Unknown]
  - Arthralgia [Unknown]
